FAERS Safety Report 9789987 (Version 1)
Quarter: 2013Q4

REPORT INFORMATION
  Report Type: Spontaneous
  Country: US (occurrence: None)
  Receive Date: 20131230
  Receipt Date: 20131230
  Transmission Date: 20140711
  Serious: No
  Sender: FDA-Public Use
  Company Number: None

PATIENT
  Age: 70 Year
  Sex: Male
  Weight: 66.23 kg

DRUGS (2)
  1. SPIRIVA [Suspect]
     Indication: DYSPNOEA
     Dosage: INHALE ONE CAPSULE VIA, ONCE DAILY, INHALATION
     Route: 055
     Dates: start: 20131218, end: 20131221
  2. SPIRIVA [Suspect]
     Indication: CHRONIC OBSTRUCTIVE PULMONARY DISEASE
     Dosage: INHALE ONE CAPSULE VIA, ONCE DAILY, INHALATION
     Route: 055
     Dates: start: 20131218, end: 20131221

REACTIONS (3)
  - Urticaria [None]
  - Pruritus [None]
  - Dyspnoea [None]
